FAERS Safety Report 21144402 (Version 2)
Quarter: 2022Q3

REPORT INFORMATION
  Report Type: Spontaneous
  Country: DE (occurrence: DE)
  Receive Date: 20220728
  Receipt Date: 20220906
  Transmission Date: 20221027
  Serious: Yes (Death, Hospitalization, Other)
  Sender: FDA-Public Use
  Company Number: DE-BoehringerIngelheim-2022-BI-184195

PATIENT
  Age: 60 Year
  Sex: Male

DRUGS (1)
  1. TIOTROPIUM BROMIDE ANHYDROUS [Suspect]
     Active Substance: TIOTROPIUM BROMIDE ANHYDROUS
     Indication: Chronic obstructive pulmonary disease

REACTIONS (7)
  - Death [Fatal]
  - Chronic obstructive pulmonary disease [Unknown]
  - Respiratory failure [Unknown]
  - Emphysema [Unknown]
  - Hypercapnia [Unknown]
  - Anaesthesia [Unknown]
  - Prescribed overdose [Unknown]

NARRATIVE: CASE EVENT DATE: 20210801
